FAERS Safety Report 4454919-6 (Version None)
Quarter: 2004Q3

REPORT INFORMATION
  Report Type: 
  Country: None (occurrence: None)
  Receive Date: 20040921
  Receipt Date: 20040907
  Transmission Date: 20050211
  Serious: Yes (Hospitalization)
  Sender: FDA-Public Use
  Company Number: FR-GLAXOSMITHKLINE-B0345448A

PATIENT
  Age: 29 Year
  Sex: Female

DRUGS (4)
  1. COMBIVIR [Suspect]
     Indication: HIV INFECTION
     Route: 048
     Dates: start: 20040325, end: 20040601
  2. VIRACEPT [Suspect]
     Indication: HIV INFECTION
     Route: 048
     Dates: start: 20040325, end: 20040601
  3. BACTRIM [Concomitant]
     Route: 048
     Dates: start: 20040325, end: 20040601
  4. TARDYFERON [Concomitant]
     Route: 048
     Dates: start: 20040325, end: 20040601

REACTIONS (2)
  - INTRA-UTERINE DEATH [None]
  - POLYHYDRAMNIOS [None]
